FAERS Safety Report 7328890-3 (Version None)
Quarter: 2011Q1

REPORT INFORMATION
  Report Type: 
  Country: None (occurrence: None)
  Receive Date: 20110225
  Receipt Date: 20110225
  Transmission Date: 20110831
  Serious: Yes (Hospitalization)
  Sender: FDA-Public Use
  Company Number: None

PATIENT
  Sex: Male
  Weight: 93.8 kg

DRUGS (5)
  1. CYTARABINE [Suspect]
     Dosage: 100 MG
  2. VINCRISTINE SULFATE [Suspect]
     Dosage: 8 MG
  3. PEG-L- ASPARAGINASE (K- H) [Suspect]
     Dosage: 5507 IU
  4. DAUNORUBICIN [Suspect]
     Dosage: 221 MG
  5. METHOTREXATE [Suspect]
     Dosage: 15 MG

REACTIONS (1)
  - BLOOD FIBRINOGEN DECREASED [None]
